FAERS Safety Report 21811822 (Version 2)
Quarter: 2023Q1

REPORT INFORMATION
  Report Type: Spontaneous
  Country: US (occurrence: US)
  Receive Date: 20230103
  Receipt Date: 20230222
  Transmission Date: 20230417
  Serious: No
  Sender: FDA-Public Use
  Company Number: US-BIOVITRUM-2023US00099

PATIENT
  Age: 0 Year
  Sex: Male
  Weight: 4 kg

DRUGS (7)
  1. SYNAGIS [Suspect]
     Active Substance: PALIVIZUMAB
     Indication: Premature labour
     Dates: start: 202211
  2. SYNAGIS [Suspect]
     Active Substance: PALIVIZUMAB
     Indication: Obstructive sleep apnoea syndrome
     Dates: start: 20221230
  3. SYNAGIS [Suspect]
     Active Substance: PALIVIZUMAB
     Indication: Anaemia neonatal
  4. SYNAGIS [Suspect]
     Active Substance: PALIVIZUMAB
     Indication: Neonatal respiratory distress syndrome
  5. DIETARY SUPPLEMENT [Concomitant]
     Active Substance: DIETARY SUPPLEMENT
     Dosage: 2.5-2MG/5
  6. VITAMINS NOS [Concomitant]
     Active Substance: VITAMINS
     Dosage: 9 MG/15 ML LIQUID
  7. IRON [Concomitant]
     Active Substance: IRON
     Dosage: 15MG/0.5ML DROPS

REACTIONS (5)
  - Oropharyngeal pain [Not Recovered/Not Resolved]
  - Sneezing [Not Recovered/Not Resolved]
  - Tachypnoea [Unknown]
  - Use of accessory respiratory muscles [Unknown]
  - Tracheal disorder [Unknown]

NARRATIVE: CASE EVENT DATE: 20221229
